FAERS Safety Report 9684556 (Version 2)
Quarter: 2013Q4

REPORT INFORMATION
  Report Type: Spontaneous
  Country: LU (occurrence: LU)
  Receive Date: 20131112
  Receipt Date: 20131205
  Transmission Date: 20140711
  Serious: Yes (Life-Threatening, Hospitalization, Disabling)
  Sender: FDA-Public Use
  Company Number: LU-B.I. PHARMACEUTICALS,INC./RIDGEFIELD-2013-BI-36252BL

PATIENT
  Age: 69 Year
  Sex: Male
  Weight: 85 kg

DRUGS (7)
  1. PRADAXA [Suspect]
     Indication: ATRIAL FIBRILLATION
     Dosage: 220 MG
     Route: 048
     Dates: start: 20101127, end: 20131019
  2. PRADAXA [Suspect]
     Dosage: 300 MG
     Route: 048
     Dates: end: 2013
  3. DIPIPERON [Concomitant]
     Indication: MENTAL DISORDER
     Dosage: DOSE PER APPLICATION: 40 MG/ML, DAILY DOSE: 800 MG/ML
     Route: 048
     Dates: start: 20121127
  4. JANUVIA [Concomitant]
     Indication: TYPE 2 DIABETES MELLITUS
     Dosage: 100 MG
     Route: 048
     Dates: start: 20111121
  5. LASIX [Concomitant]
     Indication: OEDEMA PERIPHERAL
     Dosage: 40 MG
     Route: 048
  6. LIPITOR [Concomitant]
     Indication: HYPERCHOLESTEROLAEMIA
     Dosage: 40 MG
     Route: 048
  7. NEXIAM [Concomitant]
     Indication: ABDOMINAL PAIN UPPER
     Dosage: 40 MG
     Route: 048
     Dates: start: 20111121

REACTIONS (2)
  - Cerebrovascular accident [Not Recovered/Not Resolved]
  - Cholecystitis [Unknown]
